FAERS Safety Report 8450581-6 (Version None)
Quarter: 2012Q2

REPORT INFORMATION
  Report Type: 
  Country: None (occurrence: None)
  Receive Date: 20120620
  Receipt Date: 20120614
  Transmission Date: 20120825
  Serious: Yes (Other)
  Sender: FDA-Public Use
  Company Number: US-PFIZER INC-2012144782

PATIENT
  Sex: Female
  Weight: 65.76 kg

DRUGS (6)
  1. PREMARIN [Suspect]
     Dosage: 0.09 MG, ALTERNATE DAY
     Dates: end: 20120501
  2. RANITIDINE [Suspect]
     Indication: GASTROOESOPHAGEAL REFLUX DISEASE
     Dosage: 300 MG, 1X/DAY
     Dates: start: 20120101
  3. PREDNISONE TAB [Suspect]
     Dosage: UNK
  4. CARVEDILOL [Concomitant]
     Indication: HYPERTENSION
     Dosage: 6.25 MG, 2X/DAY
  5. ZANTAC [Suspect]
     Indication: GASTROOESOPHAGEAL REFLUX DISEASE
     Dosage: 300 MG, 1X/DAY
     Dates: start: 20120501, end: 20120101
  6. PREMARIN [Suspect]
     Indication: HYSTERECTOMY
     Dosage: 0.09 MG, 1X/DAY

REACTIONS (9)
  - DRUG INEFFECTIVE [None]
  - DYSPHONIA [None]
  - NAUSEA [None]
  - PRURITUS [None]
  - HYPERSENSITIVITY [None]
  - INCORRECT DOSE ADMINISTERED [None]
  - HERPES ZOSTER [None]
  - ASTHENIA [None]
  - MALAISE [None]
